FAERS Safety Report 7397895-9 (Version None)
Quarter: 2011Q2

REPORT INFORMATION
  Report Type: 
  Country: None (occurrence: None)
  Receive Date: 20110406
  Receipt Date: 20110324
  Transmission Date: 20111010
  Serious: Yes (Other)
  Sender: FDA-Public Use
  Company Number: PHHY2010JP69959

PATIENT
  Sex: Male

DRUGS (6)
  1. ZOMETA [Suspect]
     Indication: METASTASES TO BONE
     Dosage: 4 MG, QMO
     Route: 041
     Dates: start: 20060901, end: 20091224
  2. VELCADE [Concomitant]
     Indication: MULTIPLE MYELOMA
     Dosage: 1.5 MG, UNK
     Route: 041
     Dates: start: 20100701
  3. DECADRON [Suspect]
     Indication: MULTIPLE MYELOMA
     Dosage: 16.5 MG, DAILY
     Route: 041
     Dates: start: 20100701, end: 20100831
  4. STEROIDS NOS [Suspect]
  5. SOLU-CORTEF [Concomitant]
     Dosage: 200 MG, UNK
     Route: 041
     Dates: start: 20060901, end: 20091224
  6. STARSIS [Concomitant]
     Indication: DIABETES MELLITUS
     Dosage: 270 MG, UNK
     Route: 048

REACTIONS (6)
  - NEOPLASM MALIGNANT [None]
  - PERIODONTITIS [None]
  - DIABETES MELLITUS [None]
  - PAIN IN JAW [None]
  - OSTEOMYELITIS [None]
  - LOCAL SWELLING [None]
